FAERS Safety Report 4358037-7 (Version None)
Quarter: 2004Q2

REPORT INFORMATION
  Report Type: 
  Country: None (occurrence: None)
  Receive Date: 20040510
  Receipt Date: 20040422
  Transmission Date: 20050107
  Serious: Yes (Other)
  Sender: FDA-Public Use
  Company Number: A03200401263

PATIENT
  Age: 58 Year
  Sex: Male

DRUGS (2)
  1. ARIXTRA [Suspect]
     Indication: KNEE OPERATION
     Dosage: SUBCUTANEOUS
     Route: 058
     Dates: start: 20040401, end: 20040401
  2. ARIXTRA [Suspect]
     Indication: THROMBOSIS PROPHYLAXIS
     Dosage: SUBCUTANEOUS
     Route: 058
     Dates: start: 20040401, end: 20040401

REACTIONS (1)
  - IDIOPATHIC THROMBOCYTOPENIC PURPURA [None]
